FAERS Safety Report 6832797-5 (Version None)
Quarter: 2010Q3

REPORT INFORMATION
  Report Type: 
  Country: None (occurrence: None)
  Receive Date: 20100712
  Receipt Date: 20070726
  Transmission Date: 20110219
  Serious: No
  Sender: FDA-Public Use
  Company Number: US-PFIZER INC-2007024175

PATIENT
  Sex: Female
  Weight: 38.56 kg

DRUGS (3)
  1. CHANTIX [Suspect]
     Indication: SMOKING CESSATION THERAPY
     Route: 048
     Dates: start: 20070318
  2. MEGACE [Concomitant]
     Indication: DECREASED APPETITE
     Route: 048
  3. HERBAL NOS/MINERALS NOS [Concomitant]
     Route: 048

REACTIONS (3)
  - DECREASED APPETITE [None]
  - MUCOUS MEMBRANE DISORDER [None]
  - URINE ODOUR ABNORMAL [None]
